FAERS Safety Report 11309289 (Version 1)
Quarter: 2015Q3

REPORT INFORMATION
  Report Type: Report from Study
  Country: US (occurrence: US)
  Receive Date: 20150724
  Receipt Date: 20150724
  Transmission Date: 20151125
  Serious: Yes (Hospitalization, Other)
  Sender: FDA-Public Use
  Company Number: US-ABBVIE-15K-163-1420278-00

PATIENT
  Age: 58 Year
  Sex: Female
  Weight: 70.82 kg

DRUGS (8)
  1. LEVAQUIN [Suspect]
     Active Substance: LEVOFLOXACIN
     Indication: SINUSITIS
  2. HYDROCHLOROTHIAZIDE. [Concomitant]
     Active Substance: HYDROCHLOROTHIAZIDE
     Indication: HYPERTENSION
  3. LEVAQUIN [Suspect]
     Active Substance: LEVOFLOXACIN
     Indication: PERICARDITIS
     Route: 065
  4. PREDNISONE. [Concomitant]
     Active Substance: PREDNISONE
     Indication: ARTHRITIS
  5. HUMIRA [Suspect]
     Active Substance: ADALIMUMAB
     Indication: ARTHRITIS
  6. PREDNISONE. [Concomitant]
     Active Substance: PREDNISONE
     Indication: RHEUMATOID ARTHRITIS
  7. HUMIRA [Suspect]
     Active Substance: ADALIMUMAB
     Indication: COLITIS ULCERATIVE
     Route: 058
     Dates: start: 201404, end: 20150131
  8. HUMIRA [Suspect]
     Active Substance: ADALIMUMAB
     Indication: RHEUMATOID ARTHRITIS

REACTIONS (9)
  - Vision blurred [Recovering/Resolving]
  - Drug hypersensitivity [Not Recovered/Not Resolved]
  - Sinusitis [Recovered/Resolved]
  - Abdominal pain upper [Recovered/Resolved]
  - Eye haemorrhage [Recovering/Resolving]
  - Pericarditis [Recovered/Resolved]
  - Painful respiration [Recovered/Resolved]
  - Electrocardiogram abnormal [Recovered/Resolved]
  - Lupus-like syndrome [Recovering/Resolving]

NARRATIVE: CASE EVENT DATE: 201502
